FAERS Safety Report 16479292 (Version 2)
Quarter: 2019Q3

REPORT INFORMATION
  Report Type: Report from Study
  Country: AU (occurrence: AU)
  Receive Date: 20190626
  Receipt Date: 20190712
  Transmission Date: 20191004
  Serious: Yes (Hospitalization)
  Sender: FDA-Public Use
  Company Number: AU-VERTEX PHARMACEUTICALS-2019-005790

PATIENT
  Sex: Female

DRUGS (23)
  1. VITABDECK [Concomitant]
     Dosage: 2 DOSAGE FORM, QAM
  2. SALT [Concomitant]
     Active Substance: SODIUM CHLORIDE
     Dosage: 600 MG , 12 DOSAGE FORM OVER THE COURSE OF THE DAY
  3. OSTEVIT D [Concomitant]
     Dosage: 25MCG , 1 DOSAGE FORM, QD
  4. ACIMAX [Concomitant]
     Active Substance: OMEPRAZOLE
     Dosage: 20 MG, 1 TABLET FORM, QPM
  5. CITALOPRAM [Concomitant]
     Active Substance: CITALOPRAM HYDROBROMIDE
     Dosage: 1 DOSAGE FORM, 20 MG,  QAM
  6. DYMADON P [Concomitant]
     Indication: PYREXIA
  7. TOBI [Concomitant]
     Active Substance: TOBRAMYCIN
     Dosage: 5 MILLILITER, BID
     Route: 055
  8. INNER HEALTH PLUS [Concomitant]
     Dosage: 1 DOSAGE FORM, QAM
  9. BRONCHITOL [Concomitant]
     Dosage: 40 MG, BID
     Route: 055
  10. CREON [Concomitant]
     Active Substance: PANCRELIPASE AMYLASE\PANCRELIPASE LIPASE\PANCRELIPASE PROTEASE
  11. DUPHALAC [Concomitant]
     Active Substance: LACTULOSE
     Indication: CONSTIPATION
     Dosage: 10 MILLILITER, QD
  12. DYMADON P [Concomitant]
     Indication: PAIN
     Dosage: 500 MG, 1 AND A HALF DOSAGE FORM, Q6H
  13. NUTRINI PEPTISORB [Concomitant]
     Dosage: BID
  14. SODIUM CHLORIDE FRESENIUS KABI [Concomitant]
     Dosage: 10 MILLILITER
  15. C-FLOX [CIPROFLOXACIN] [Concomitant]
     Dosage: 1 DOSAGE FORM, 750 MG, BID
  16. PULMOZYME [Concomitant]
     Active Substance: DORNASE ALFA
     Dosage: 1 DOSAGE FORM, 2.5 ML, QPM
     Route: 055
  17. ONDANSETRON AN [Concomitant]
     Active Substance: ONDANSETRON HYDROCHLORIDE
     Indication: NAUSEA
     Dosage: 4 MG, 2 DOSAGE FORM, Q8H
  18. ORKAMBI [Suspect]
     Active Substance: IVACAFTOR\LUMACAFTOR
     Indication: CYSTIC FIBROSIS
     Dosage: 2 DOSAGE FORM, BID
     Route: 048
     Dates: start: 20170419
  19. APO AZITHROMYCIN [Concomitant]
     Active Substance: AZITHROMYCIN
     Dosage: 500 MILLIGRAM, 1 DOSAGE FORM, THRICE A WEEK (M-W-F)
  20. TADIM [Concomitant]
     Active Substance: COLISTIMETHATE SODIUM
     Route: 055
  21. VENTOLIN [Concomitant]
     Active Substance: ALBUTEROL SULFATE
     Dosage: 100 MICROGRAM, 6- 12 PUFFS, BID
     Route: 055
  22. ONDANSETRON AN [Concomitant]
     Active Substance: ONDANSETRON HYDROCHLORIDE
     Indication: VOMITING
  23. COLISTIN [Concomitant]
     Active Substance: COLISTIN

REACTIONS (3)
  - Bronchiectasis [Not Recovered/Not Resolved]
  - Cystic fibrosis lung [Not Recovered/Not Resolved]
  - Infective pulmonary exacerbation of cystic fibrosis [Unknown]

NARRATIVE: CASE EVENT DATE: 2018
